FAERS Safety Report 5127726-9 (Version None)
Quarter: 2006Q4

REPORT INFORMATION
  Report Type: 
  Country: None (occurrence: None)
  Receive Date: 20061016
  Receipt Date: 20061005
  Transmission Date: 20070319
  Serious: Yes (Life-Threatening)
  Sender: FDA-Public Use
  Company Number: FR-GLAXOSMITHKLINE-B0441928A

PATIENT
  Age: 79 Year
  Sex: Male

DRUGS (1)
  1. AUGMENTIN '125' [Suspect]
     Route: 042
     Dates: start: 20050301, end: 20050301

REACTIONS (4)
  - ANAPHYLACTIC REACTION [None]
  - CARDIO-RESPIRATORY ARREST [None]
  - DRUG HYPERSENSITIVITY [None]
  - MALAISE [None]
